FAERS Safety Report 10451753 (Version 44)
Quarter: 2025Q1

REPORT INFORMATION
  Report Type: Report from Study
  Country: CA (occurrence: CA)
  Receive Date: 20140915
  Receipt Date: 20250222
  Transmission Date: 20250409
  Serious: Yes (Other)
  Sender: ROCHE
  Company Number: CA-ROCHE-1113398

PATIENT
  Age: 60 Year
  Sex: Male
  Weight: 100.0 kg

DRUGS (34)
  1. ACTEMRA [Suspect]
     Active Substance: TOCILIZUMAB
     Indication: Rheumatoid arthritis
     Route: 042
     Dates: start: 20110811, end: 20161228
  2. ACTEMRA [Suspect]
     Active Substance: TOCILIZUMAB
     Route: 042
     Dates: start: 20120607, end: 20130509
  3. ACTEMRA [Suspect]
     Active Substance: TOCILIZUMAB
     Dosage: DATE OF THE LAST DOS E PRIOR TO THE ADVERSE EVENT PAIN : 04/JUL/2013
     Route: 042
     Dates: start: 20130606
  4. ACTEMRA [Suspect]
     Active Substance: TOCILIZUMAB
     Route: 042
     Dates: start: 20131003
  5. ACTEMRA [Suspect]
     Active Substance: TOCILIZUMAB
     Route: 042
     Dates: start: 20131031
  6. ACTEMRA [Suspect]
     Active Substance: TOCILIZUMAB
     Route: 042
     Dates: start: 20131227
  7. ACTEMRA [Suspect]
     Active Substance: TOCILIZUMAB
     Route: 042
     Dates: start: 20140123
  8. ACTEMRA [Suspect]
     Active Substance: TOCILIZUMAB
     Route: 042
     Dates: start: 20140327
  9. ACTEMRA [Suspect]
     Active Substance: TOCILIZUMAB
     Route: 042
     Dates: start: 20140424
  10. ACTEMRA [Suspect]
     Active Substance: TOCILIZUMAB
     Route: 042
     Dates: start: 20140619
  11. ACTEMRA [Suspect]
     Active Substance: TOCILIZUMAB
     Route: 042
     Dates: start: 20140717
  12. ACTEMRA [Suspect]
     Active Substance: TOCILIZUMAB
     Route: 042
     Dates: start: 20140814
  13. ACTEMRA [Suspect]
     Active Substance: TOCILIZUMAB
     Route: 042
     Dates: start: 20150723
  14. ACTEMRA [Suspect]
     Active Substance: TOCILIZUMAB
     Route: 042
     Dates: start: 20150820
  15. ACTEMRA [Suspect]
     Active Substance: TOCILIZUMAB
     Route: 042
     Dates: start: 20150917
  16. ACTEMRA [Suspect]
     Active Substance: TOCILIZUMAB
     Route: 042
     Dates: start: 20151015
  17. ACTEMRA [Suspect]
     Active Substance: TOCILIZUMAB
     Route: 042
     Dates: start: 20151116
  18. ACTEMRA [Suspect]
     Active Substance: TOCILIZUMAB
     Route: 042
     Dates: start: 20151217
  19. ACTEMRA [Suspect]
     Active Substance: TOCILIZUMAB
     Route: 042
     Dates: start: 20160122
  20. ACTEMRA [Suspect]
     Active Substance: TOCILIZUMAB
     Route: 042
     Dates: start: 20160216
  21. ACTEMRA [Suspect]
     Active Substance: TOCILIZUMAB
     Route: 042
     Dates: start: 20160317
  22. ACTEMRA [Suspect]
     Active Substance: TOCILIZUMAB
     Route: 042
     Dates: start: 20161103
  23. ACTEMRA [Suspect]
     Active Substance: TOCILIZUMAB
     Route: 042
     Dates: start: 20180809
  24. ACTEMRA [Suspect]
     Active Substance: TOCILIZUMAB
     Route: 042
     Dates: start: 20160216
  25. ACTEMRA [Suspect]
     Active Substance: TOCILIZUMAB
     Dosage: ACCORDING TO WEIGHT MG MILLIGRAM(S)
     Route: 042
     Dates: start: 20110811, end: 20161228
  26. ACTEMRA [Suspect]
     Active Substance: TOCILIZUMAB
     Dosage: NO PIRS RECEIVED DURING THIS PERIOD, ENROLMENTS FROM 14-MAR-2016 NOTED 800 MG,?ENROLMENT FROM 07-NOV
     Route: 042
     Dates: start: 20170126, end: 20180614
  27. ACTEMRA [Suspect]
     Active Substance: TOCILIZUMAB
     Route: 042
     Dates: start: 20180712
  28. ACTEMRA [Suspect]
     Active Substance: TOCILIZUMAB
     Route: 042
     Dates: start: 20110811, end: 20120511
  29. ACTEMRA [Suspect]
     Active Substance: TOCILIZUMAB
     Route: 042
     Dates: start: 20140327, end: 20161228
  30. ACTEMRA [Suspect]
     Active Substance: TOCILIZUMAB
     Route: 042
  31. ACTEMRA [Suspect]
     Active Substance: TOCILIZUMAB
     Route: 042
  32. ACTEMRA [Suspect]
     Active Substance: TOCILIZUMAB
     Route: 042
  33. ACTEMRA [Suspect]
     Active Substance: TOCILIZUMAB
     Route: 042
  34. METHOTREXATE [Concomitant]
     Active Substance: METHOTREXATE

REACTIONS (52)
  - Pain in extremity [Not Recovered/Not Resolved]
  - Back pain [Recovered/Resolved]
  - Fatigue [Unknown]
  - Cough [Unknown]
  - Nasal congestion [Unknown]
  - Arthralgia [Not Recovered/Not Resolved]
  - Heart rate decreased [Recovered/Resolved]
  - Hypotension [Not Recovered/Not Resolved]
  - Fatigue [Unknown]
  - Asthenia [Unknown]
  - Dizziness [Recovered/Resolved]
  - Weight increased [Recovered/Resolved]
  - Cheilitis [Recovered/Resolved]
  - Wound infection [Recovered/Resolved]
  - Arthralgia [Not Recovered/Not Resolved]
  - Pain [Not Recovered/Not Resolved]
  - Skin abrasion [Recovering/Resolving]
  - Musculoskeletal discomfort [Unknown]
  - Arthralgia [Recovered/Resolved]
  - Peripheral swelling [Unknown]
  - Joint swelling [Unknown]
  - Heart rate decreased [Unknown]
  - Nephrolithiasis [Unknown]
  - Osteoporosis [Not Recovered/Not Resolved]
  - Headache [Unknown]
  - Somnolence [Recovered/Resolved]
  - Wrist deformity [Not Recovered/Not Resolved]
  - Haematuria [Not Recovered/Not Resolved]
  - Nephrolithiasis [Not Recovered/Not Resolved]
  - Nodule [Not Recovered/Not Resolved]
  - Gait disturbance [Unknown]
  - Musculoskeletal stiffness [Unknown]
  - Arthritis [Recovering/Resolving]
  - Body temperature decreased [Unknown]
  - Nasopharyngitis [Recovered/Resolved]
  - Body temperature decreased [Unknown]
  - Fall [Unknown]
  - Blood pressure diastolic increased [Unknown]
  - Joint swelling [Not Recovered/Not Resolved]
  - Limb injury [Unknown]
  - Splinter [Recovered/Resolved]
  - Localised infection [Recovered/Resolved]
  - Oedema peripheral [Not Recovered/Not Resolved]
  - Movement disorder [Not Recovered/Not Resolved]
  - Oedema peripheral [Unknown]
  - Back pain [Not Recovered/Not Resolved]
  - Disability assessment scale score increased [Unknown]
  - Blood pressure systolic increased [Unknown]
  - Nasopharyngitis [Not Recovered/Not Resolved]
  - Decreased appetite [Not Recovered/Not Resolved]
  - Blood pressure diastolic decreased [Unknown]
  - Drug ineffective [Unknown]

NARRATIVE: CASE EVENT DATE: 20110901
